FAERS Safety Report 23903777 (Version 1)
Quarter: 2024Q2

REPORT INFORMATION
  Report Type: Report from Study
  Country: US (occurrence: US)
  Receive Date: 20240527
  Receipt Date: 20240527
  Transmission Date: 20240716
  Serious: Yes (Other)
  Sender: FDA-Public Use
  Company Number: US-TEVA-VS-3200931

PATIENT
  Age: 72 Year
  Sex: Female

DRUGS (1)
  1. AUSTEDO XR [Suspect]
     Active Substance: DEUTETRABENAZINE
     Indication: Tardive dyskinesia
     Dosage: ONCE A DAY
     Route: 048
     Dates: start: 20240312, end: 20240515

REACTIONS (6)
  - Mental impairment [Unknown]
  - Anxiety [Unknown]
  - Depression [Unknown]
  - Illness [Unknown]
  - Dyskinesia [Unknown]
  - Hyperhidrosis [Unknown]
